FAERS Safety Report 9790723 (Version 2)
Quarter: 2014Q1

REPORT INFORMATION
  Report Type: Spontaneous
  Country: US (occurrence: US)
  Receive Date: 20131231
  Receipt Date: 20140123
  Transmission Date: 20141002
  Serious: No
  Sender: FDA-Public Use
  Company Number: US-009507513-1312USA008970

PATIENT
  Age: 82 Year
  Sex: Female
  Weight: 62.59 kg

DRUGS (8)
  1. OXYTROL FOR WOMEN [Suspect]
     Indication: URINARY INCONTINENCE
     Dosage: UNK, UNKNOWN
     Route: 062
     Dates: start: 20131122, end: 20131204
  2. OXYTROL FOR WOMEN [Suspect]
     Dosage: UNK, UNKNOWN
     Route: 062
     Dates: start: 20131122, end: 20131204
  3. DILTIAZEM HYDROCHLORIDE [Concomitant]
     Indication: HYPERTENSION
     Dosage: 240 MG, QD
  4. LASIX (FUROSEMIDE SODIUM) [Concomitant]
     Indication: HYPERTENSION
     Dosage: UNK, UNKNOWN
  5. GABAPENTIN [Concomitant]
     Indication: ARTHRITIS
     Dosage: UNK, UNKNOWN
  6. TYLENOL [Concomitant]
     Indication: ARTHRITIS
     Dosage: 650 MG, BID
  7. LIDODERM [Concomitant]
     Indication: ARTHRITIS
     Dosage: UNK, Q12H
  8. LATANOPROST [Concomitant]
     Indication: GLAUCOMA
     Dosage: UNK, QPM

REACTIONS (2)
  - Skin irritation [Recovered/Resolved]
  - Application site rash [Recovered/Resolved]
